FAERS Safety Report 14540469 (Version 6)
Quarter: 2019Q2

REPORT INFORMATION
  Report Type: Spontaneous
  Country: ES (occurrence: ES)
  Receive Date: 20180216
  Receipt Date: 20190625
  Transmission Date: 20190711
  Serious: Yes (Hospitalization, Other)
  Sender: FDA-Public Use
  Company Number: ES-GLAXOSMITHKLINE-ES2018023054

PATIENT
  Age: 43 Year
  Sex: Female

DRUGS (4)
  1. LEVOFLOXACIN. [Suspect]
     Active Substance: LEVOFLOXACIN
     Indication: ANTIBIOTIC PROPHYLAXIS
     Dosage: OCCASIONAL IF YOU NEED
     Route: 048
     Dates: start: 20171108, end: 20171112
  2. SEPTRIN FORTE [Suspect]
     Active Substance: SULFAMETHOXAZOLE\TRIMETHOPRIM
     Indication: PROPHYLAXIS
     Dosage: SEPTRIM FORTE 800/160 MG, 1 TABLET EVERY 12 HOURS, 2 DAYS A WEEK
     Route: 048
     Dates: start: 20171007, end: 20171112
  3. ACICLOVIR [Suspect]
     Active Substance: ACYCLOVIR
     Indication: ANTIVIRAL PROPHYLAXIS
     Dosage: 800MG 1 COMP DAILY (REDUCED TO 250 DAILY)
     Route: 048
     Dates: start: 20171011
  4. METHOTREXATE. [Suspect]
     Active Substance: METHOTREXATE
     Indication: T-CELL LYMPHOMA STAGE IV
     Dosage: IN TOTAL 5 G/M2
     Route: 042
     Dates: start: 20171031, end: 20171031

REACTIONS (1)
  - Stevens-Johnson syndrome [Recovering/Resolving]

NARRATIVE: CASE EVENT DATE: 20171111
